FAERS Safety Report 5156657-3 (Version None)
Quarter: 2006Q4

REPORT INFORMATION
  Report Type: 
  Country: None (occurrence: None)
  Receive Date: 20061115
  Receipt Date: 20061104
  Transmission Date: 20070319
  Serious: Yes (Other)
  Sender: FDA-Public Use
  Company Number: 2006137225

PATIENT
  Age: 26 Year
  Sex: Female
  Weight: 157.8518 kg

DRUGS (11)
  1. XANAX [Suspect]
     Indication: ANXIETY
     Dosage: 1 MG (1 MG, 1 IN 1 D)
     Dates: start: 20060101
  2. XANAX [Suspect]
     Indication: INSOMNIA
     Dosage: 1 MG (1 MG, 1 IN 1 D)
     Dates: start: 20060101
  3. LYRICA [Suspect]
     Indication: CONVULSION
     Dosage: 150 MG (75 MG, 1 IN 1 D), ORAL
     Route: 048
     Dates: start: 20060101
  4. GABAPENTIN [Concomitant]
  5. DEPAKOTE [Concomitant]
  6. ZONEGRAN [Concomitant]
  7. TRILEPTAL [Concomitant]
  8. ZESTRIL [Concomitant]
  9. ENALAPRIL MALEATE [Concomitant]
  10. TOPAMAX [Concomitant]
  11. CELEXA [Concomitant]

REACTIONS (7)
  - BIPOLAR DISORDER [None]
  - CONVULSION [None]
  - DRUG WITHDRAWAL SYNDROME [None]
  - ECONOMIC PROBLEM [None]
  - SCHIZOPHRENIA [None]
  - SLEEP APNOEA SYNDROME [None]
  - TREATMENT NONCOMPLIANCE [None]
